FAERS Safety Report 19730555 (Version 4)
Quarter: 2022Q2

REPORT INFORMATION
  Report Type: Report from Study
  Country: US (occurrence: US)
  Receive Date: 20210821
  Receipt Date: 20220411
  Transmission Date: 20220720
  Serious: Yes (Other)
  Sender: FDA-Public Use
  Company Number: US-NOVARTISTESTPH-NVSC2021US184743

PATIENT
  Sex: Male

DRUGS (2)
  1. COSENTYX [Suspect]
     Active Substance: SECUKINUMAB
     Indication: Psoriatic arthropathy
     Dosage: 300 MG, QMO (BENEATH THE SKIN, USUALLY VIA INJECTION)
     Route: 058
  2. COSENTYX [Suspect]
     Active Substance: SECUKINUMAB
     Dosage: 150 MG, UNKNOWN (MAINTENANCE DOSE)
     Route: 065

REACTIONS (7)
  - Psoriatic arthropathy [Unknown]
  - Rash [Unknown]
  - Pain [Unknown]
  - Furuncle [Unknown]
  - Speech disorder [Unknown]
  - Arthralgia [Unknown]
  - Stress [Unknown]
